FAERS Safety Report 7870872-7 (Version None)
Quarter: 2011Q3

REPORT INFORMATION
  Report Type: 
  Country: None (occurrence: None)
  Receive Date: 20110923
  Receipt Date: 20101217
  Transmission Date: 20111222
  Serious: Yes (Other)
  Sender: FDA-Public Use
  Company Number: 783075

PATIENT
  Age: 50 Year
  Sex: Male
  Weight: 81.4 kg

DRUGS (5)
  1. RITUXAN [Suspect]
     Indication: CHRONIC LYMPHOCYTIC LEUKAEMIA
     Dates: start: 20080211, end: 20080211
  2. CYCLOPHOSPHAMIDE [Suspect]
     Indication: CHRONIC LYMPHOCYTIC LEUKAEMIA
     Dosage: 600 MG/M2 DAY 1 ; 1254 NG
     Dates: start: 20080620, end: 20080620
  3. CYCLOPHOSPHAMIDE [Suspect]
     Indication: CHRONIC LYMPHOCYTIC LEUKAEMIA
     Dosage: 600 MG/M2 DAY 1 ; 1254 NG
     Dates: start: 20080211
  4. NIPENT [Suspect]
     Indication: CHRONIC LYMPHOCYTIC LEUKAEMIA
     Dosage: 4 MG/M2 DAY 1 ; 8.36 MG
     Dates: start: 20080211
  5. NIPENT [Suspect]
     Indication: CHRONIC LYMPHOCYTIC LEUKAEMIA
     Dosage: 4 MG/M2 DAY 1 ; 8.36 MG
     Dates: start: 20080620, end: 20080620

REACTIONS (1)
  - NEUTROPENIA [None]
